FAERS Safety Report 7357470-9 (Version None)
Quarter: 2011Q1

REPORT INFORMATION
  Report Type: 
  Country: None (occurrence: None)
  Receive Date: 20110314
  Receipt Date: 20110314
  Transmission Date: 20110831
  Serious: Yes (Other)
  Sender: FDA-Public Use
  Company Number: None

PATIENT
  Age: 66 Year
  Sex: Female
  Weight: 68.0396 kg

DRUGS (1)
  1. LOSARTAN POTASSIUM [Suspect]
     Indication: HYPERTENSION
     Dosage: 50 MGM TWICE DAILY PO
     Route: 048
     Dates: start: 20110211, end: 20110303

REACTIONS (3)
  - PRODUCT SUBSTITUTION ISSUE [None]
  - TREATMENT FAILURE [None]
  - BLOOD PRESSURE INCREASED [None]
